FAERS Safety Report 11913828 (Version 4)
Quarter: 2016Q3

REPORT INFORMATION
  Report Type: Spontaneous
  Country: JP (occurrence: JP)
  Receive Date: 20160113
  Receipt Date: 20160909
  Transmission Date: 20161109
  Serious: Yes (Hospitalization, Other)
  Sender: FDA-Public Use
  Company Number: JP-009507513-1601JPN002749

PATIENT
  Age: 74 Year
  Sex: Male
  Weight: 63 kg

DRUGS (7)
  1. BEROTEC [Concomitant]
     Active Substance: FENOTEROL HYDROBROMIDE
     Indication: ASTHMA
     Dosage: DAILY DOSAGE UNKNOWN
     Route: 055
  2. ADOAIR [Concomitant]
     Active Substance: FLUTICASONE PROPIONATE\SALMETEROL XINAFOATE
     Indication: ASTHMA
     Dosage: DAILY DOSAGE UNKNOWN
     Route: 055
  3. OMEPRAL [Concomitant]
     Active Substance: OMEPRAZOLE
     Indication: GASTROOESOPHAGEAL REFLUX DISEASE
     Dosage: 20 MG, QD, DIVIDED DOSE FREQUENCY UNKNOWN
     Route: 048
  4. REBETOL [Suspect]
     Active Substance: RIBAVIRIN
     Indication: CHRONIC HEPATITIS C
     Dosage: 800 MG, QD, DIVIDED DOSE FREQUENCY UNKNOWN
     Route: 048
     Dates: start: 20151009, end: 20160101
  5. AMLODIN (AMLODIPINE BESYLATE) [Concomitant]
     Active Substance: AMLODIPINE BESYLATE
     Indication: HYPERTENSION
     Dosage: 5 MG, QD, DIVIDED DOSE FREQUENCY UNKNOWN
     Route: 048
  6. SLO-BID [Concomitant]
     Active Substance: THEOPHYLLINE ANHYDROUS
     Indication: ASTHMA
     Dosage: 800 MG, QD, DIVIDED DOSE FREQUENCY UNKNOWN
     Route: 048
  7. SOVALDI [Suspect]
     Active Substance: SOFOSBUVIR
     Indication: CHRONIC HEPATITIS C
     Dosage: 400 MG/ DAY, DIVIDED DOSE FREQUENCY UNKNOWN
     Route: 048
     Dates: start: 20151009, end: 20160101

REACTIONS (1)
  - Pneumonia [Recovered/Resolved]

NARRATIVE: CASE EVENT DATE: 20151224
